FAERS Safety Report 13450479 (Version 1)
Quarter: 2017Q2

REPORT INFORMATION
  Report Type: Spontaneous
  Country: IR (occurrence: IR)
  Receive Date: 20170418
  Receipt Date: 20170418
  Transmission Date: 20170830
  Serious: Yes (Death, Life-Threatening, Hospitalization, Other)
  Sender: FDA-Public Use
  Company Number: IR-SUN PHARMACEUTICAL INDUSTRIES LTD-2017R1-138392

PATIENT
  Age: 49 Year
  Sex: Male

DRUGS (5)
  1. AMPICILLIN [Suspect]
     Active Substance: AMPICILLIN
     Indication: SHIGELLA INFECTION
     Route: 065
  2. COTRIMOXAZOLE [Suspect]
     Active Substance: SULFAMETHOXAZOLE\TRIMETHOPRIM
     Indication: SHIGELLA INFECTION
     Route: 065
  3. TETRACYCLINE [Suspect]
     Active Substance: TETRACYCLINE
     Indication: SHIGELLA INFECTION
     Route: 065
  4. NALIDIXIC ACID [Suspect]
     Active Substance: NALIDIXIC ACID
     Indication: SHIGELLA INFECTION
     Route: 065
  5. CHLORAMPHENICOL [Suspect]
     Active Substance: CHLORAMPHENICOL
     Indication: SHIGELLA INFECTION
     Route: 065

REACTIONS (5)
  - Drug ineffective [Not Recovered/Not Resolved]
  - Pathogen resistance [Not Recovered/Not Resolved]
  - Sepsis [Fatal]
  - Depressed level of consciousness [Not Recovered/Not Resolved]
  - Cardiac arrest [Fatal]
